FAERS Safety Report 6695854-2 (Version None)
Quarter: 2010Q2

REPORT INFORMATION
  Report Type: 
  Country: None (occurrence: None)
  Receive Date: 20100422
  Receipt Date: 20100421
  Transmission Date: 20101027
  Serious: Yes (Death, Other)
  Sender: FDA-Public Use
  Company Number: 1000009462

PATIENT
  Age: 22 Year
  Sex: Male

DRUGS (2)
  1. CITALOPRAM HYDROBROMIDE [Suspect]
     Indication: DEPRESSION
     Dosage: ORAL
     Route: 048
     Dates: start: 20090814
  2. CITROL(CITALOPRAM HYDROBROMIDE) [Concomitant]

REACTIONS (4)
  - COMPLETED SUICIDE [None]
  - HOMICIDE [None]
  - INJURY [None]
  - INTENTIONAL OVERDOSE [None]
